FAERS Safety Report 20028571 (Version 1)
Quarter: 2021Q4

REPORT INFORMATION
  Report Type: Spontaneous
  Country: US (occurrence: US)
  Receive Date: 20211103
  Receipt Date: 20211103
  Transmission Date: 20220303
  Serious: No
  Sender: FDA-Public Use
  Company Number: US-BEH-2021137332

PATIENT
  Sex: Female

DRUGS (2)
  1. HIZENTRA [Suspect]
     Active Substance: HUMAN IMMUNOGLOBULIN G
     Indication: Immunodeficiency common variable
     Dosage: 20 GRAM
     Route: 058
  2. BENADRYL [Concomitant]
     Active Substance: DIPHENHYDRAMINE HYDROCHLORIDE
     Indication: Premedication
     Dosage: 12.5 MILLIGRAM

REACTIONS (7)
  - Injection site erythema [Recovered/Resolved]
  - Headache [Unknown]
  - Fatigue [Unknown]
  - Somnolence [Unknown]
  - Peripheral swelling [Unknown]
  - Joint swelling [Unknown]
  - Abdominal distension [Unknown]
